FAERS Safety Report 12808309 (Version 1)
Quarter: 2016Q4

REPORT INFORMATION
  Report Type: Spontaneous
  Country: US (occurrence: US)
  Receive Date: 20161004
  Receipt Date: 20161004
  Transmission Date: 20170207
  Serious: No
  Sender: FDA-Public Use
  Company Number: US-BAYER-2016-191778

PATIENT
  Age: 72 Year
  Sex: Female
  Weight: 80.27 kg

DRUGS (3)
  1. LISINOPRIL. [Concomitant]
     Active Substance: LISINOPRIL
  2. SOTALOL. [Concomitant]
     Active Substance: SOTALOL
  3. MIRALAX [Suspect]
     Active Substance: POLYETHYLENE GLYCOL 3350
     Indication: GASTROINTESTINAL DISORDER
     Dosage: DOSAGE AS USED: 1/2
     Route: 048
     Dates: start: 20160902, end: 20161002

REACTIONS (3)
  - Headache [Recovered/Resolved]
  - Product use issue [None]
  - Nausea [Recovered/Resolved]
